FAERS Safety Report 10050980 (Version 1)
Quarter: 2014Q2

REPORT INFORMATION
  Report Type: Spontaneous
  Country: IN (occurrence: IN)
  Receive Date: 20140401
  Receipt Date: 20140401
  Transmission Date: 20141212
  Serious: Yes (Hospitalization, Other)
  Sender: FDA-Public Use
  Company Number: IN-GLAXOSMITHKLINE-B0981378A

PATIENT
  Age: 58 Year
  Sex: Female

DRUGS (1)
  1. VALACYCLOVIR [Suspect]
     Indication: HERPES VIRUS INFECTION
     Dosage: 500MG PER DAY
     Route: 065

REACTIONS (11)
  - Neurotoxicity [Unknown]
  - Altered state of consciousness [Unknown]
  - Irritability [Unknown]
  - Somnolence [Unknown]
  - Restlessness [Unknown]
  - Incoherent [Unknown]
  - Condition aggravated [Unknown]
  - Pallor [Unknown]
  - Mental impairment [Unknown]
  - Disorientation [Unknown]
  - Hepatic function abnormal [Unknown]
